FAERS Safety Report 25764996 (Version 1)
Quarter: 2025Q3

REPORT INFORMATION
  Report Type: Spontaneous
  Country: EU (occurrence: EU)
  Receive Date: 20250905
  Receipt Date: 20250905
  Transmission Date: 20251020
  Serious: Yes (Death, Hospitalization)
  Sender: ACCORD
  Company Number: None

PATIENT
  Age: 60 Year
  Sex: Male

DRUGS (2)
  1. METHOTREXATE [Interacting]
     Active Substance: METHOTREXATE
     Indication: Psoriatic arthropathy
     Dates: start: 202307, end: 20250503
  2. INDOMETHACIN [Interacting]
     Active Substance: INDOMETHACIN
     Indication: Pain
     Dosage: STRENGTH: 550 MG
     Dates: start: 20231218, end: 20250503

REACTIONS (2)
  - Septic shock [Fatal]
  - Salmonella sepsis [Fatal]

NARRATIVE: CASE EVENT DATE: 20250502
